FAERS Safety Report 7184180-3 (Version None)
Quarter: 2010Q4

REPORT INFORMATION
  Report Type: 
  Country: None (occurrence: None)
  Receive Date: 20101210
  Receipt Date: 20101206
  Transmission Date: 20110411
  Serious: Yes (Other)
  Sender: FDA-Public Use
  Company Number: CIP10002994

PATIENT
  Age: 78 Year
  Sex: Female

DRUGS (1)
  1. MACRODANTIN [Suspect]

REACTIONS (1)
  - ANAPHYLACTIC SHOCK [None]
